FAERS Safety Report 19660578 (Version 1)
Quarter: 2021Q3

REPORT INFORMATION
  Report Type: Spontaneous
  Country: US (occurrence: US)
  Receive Date: 20210805
  Receipt Date: 20210805
  Transmission Date: 20211014
  Serious: Yes (Hospitalization)
  Sender: FDA-Public Use
  Company Number: None

PATIENT
  Sex: Female
  Weight: 61.2 kg

DRUGS (22)
  1. AMITRIPTYLINE [Concomitant]
     Active Substance: AMITRIPTYLINE
  2. ATORVASTATIN [Concomitant]
     Active Substance: ATORVASTATIN
  3. BACLOFEN. [Concomitant]
     Active Substance: BACLOFEN
  4. ALBUTEROL. [Concomitant]
     Active Substance: ALBUTEROL
  5. CALCIUM 600 + D [Concomitant]
     Active Substance: CALCIUM\VITAMIN D
  6. THEOPHYLLINE ER [Concomitant]
     Active Substance: THEOPHYLLINE ANHYDROUS
  7. VERAPAMIL ER [Concomitant]
     Active Substance: VERAPAMIL HYDROCHLORIDE
  8. FUROSEMIDE. [Concomitant]
     Active Substance: FUROSEMIDE
  9. METOLAZONE. [Concomitant]
     Active Substance: METOLAZONE
  10. PROMACTA [Suspect]
     Active Substance: ELTROMBOPAG OLAMINE
     Indication: IMMUNE THROMBOCYTOPENIA
     Dosage: ?          OTHER FREQUENCY:THREE TIMES A WEEK;?
     Route: 048
  11. HYDROXYCHLOROQUINE SULFATE. [Concomitant]
     Active Substance: HYDROXYCHLOROQUINE SULFATE
  12. LOSARTAN. [Concomitant]
     Active Substance: LOSARTAN
  13. VOLTAREN [Concomitant]
     Active Substance: DICLOFENAC SODIUM
  14. ISOSORBIDE MONONITRATE ER [Concomitant]
     Active Substance: ISOSORBIDE MONONITRATE
  15. ASPIRIN. [Concomitant]
     Active Substance: ASPIRIN
  16. GABAPENTIN. [Concomitant]
     Active Substance: GABAPENTIN
  17. HYDROCODONE?ACETAMINOPHEN [Concomitant]
     Active Substance: ACETAMINOPHEN\HYDROCODONE
  18. LEFLUNOMIDE. [Concomitant]
     Active Substance: LEFLUNOMIDE
  19. LABETALOL [Concomitant]
     Active Substance: LABETALOL\LABETALOL HYDROCHLORIDE
  20. LANSOPRAZOLE. [Concomitant]
     Active Substance: LANSOPRAZOLE
  21. SYMBICORT [Concomitant]
     Active Substance: BUDESONIDE\FORMOTEROL FUMARATE DIHYDRATE
  22. PROMETHAZINE [Concomitant]
     Active Substance: PROMETHAZINE HYDROCHLORIDE

REACTIONS (1)
  - Blood pressure abnormal [None]
